FAERS Safety Report 7800830-X (Version None)
Quarter: 2011Q4

REPORT INFORMATION
  Report Type: 
  Country: None (occurrence: None)
  Receive Date: 20111006
  Receipt Date: 20110921
  Transmission Date: 20120403
  Serious: Yes (Other)
  Sender: FDA-Public Use
  Company Number: US-BAYER-2011-090141

PATIENT
  Age: 15 Month
  Sex: Male
  Weight: 17 kg

DRUGS (1)
  1. ASPIRIN [Suspect]
     Dosage: COUNT SIZE 200S EASY OPEN
     Route: 048
     Dates: start: 20110921

REACTIONS (2)
  - CHOKING [None]
  - COUGH [None]
